FAERS Safety Report 15896994 (Version 3)
Quarter: 2019Q1

REPORT INFORMATION
  Report Type: Spontaneous
  Country: US (occurrence: US)
  Receive Date: 20190131
  Receipt Date: 20190226
  Transmission Date: 20190417
  Serious: No
  Sender: FDA-Public Use
  Company Number: US-BAYER-2019-021181

PATIENT
  Age: 82 Year
  Sex: Female

DRUGS (3)
  1. ALIQOPA [Suspect]
     Active Substance: COPANLISIB
     Indication: B-CELL LYMPHOMA
     Dosage: 60 UNK
     Route: 042
     Dates: start: 20190109
  2. ALIQOPA [Suspect]
     Active Substance: COPANLISIB
     Indication: B-CELL LYMPHOMA
     Dosage: 60 UNK
     Route: 042
     Dates: start: 20190116
  3. ALIQOPA [Suspect]
     Active Substance: COPANLISIB
     Indication: B-CELL LYMPHOMA
     Dosage: 60 MG
     Route: 042
     Dates: start: 20190123

REACTIONS (5)
  - Blood cholesterol increased [Not Recovered/Not Resolved]
  - Rhinorrhoea [None]
  - High density lipoprotein increased [Not Recovered/Not Resolved]
  - Low density lipoprotein increased [Not Recovered/Not Resolved]
  - Blood triglycerides increased [Not Recovered/Not Resolved]

NARRATIVE: CASE EVENT DATE: 20190118
